FAERS Safety Report 7967504-6 (Version None)
Quarter: 2011Q4

REPORT INFORMATION
  Report Type: 
  Country: None (occurrence: None)
  Receive Date: 20111209
  Receipt Date: 20110722
  Transmission Date: 20120403
  Serious: No
  Sender: FDA-Public Use
  Company Number: US-GLAXOSMITHKLINE-A0940591A

PATIENT
  Age: 50 Year
  Sex: Female
  Weight: 105 kg

DRUGS (2)
  1. AVANDIA [Suspect]
     Indication: DIABETES MELLITUS
     Dosage: 4MG TWICE PER DAY
     Route: 048
     Dates: start: 20040401, end: 20070101
  2. AVANDAMET [Suspect]
     Indication: DIABETES MELLITUS

REACTIONS (4)
  - DYSPNOEA [None]
  - SWELLING [None]
  - CHEST PAIN [None]
  - ARRHYTHMIA [None]
